FAERS Safety Report 7044155-1 (Version None)
Quarter: 2010Q4

REPORT INFORMATION
  Report Type: 
  Country: None (occurrence: None)
  Receive Date: 20101013
  Receipt Date: 20101006
  Transmission Date: 20110411
  Serious: No
  Sender: FDA-Public Use
  Company Number: US-PFIZER INC-2010127874

PATIENT
  Age: 30 Year
  Sex: Female

DRUGS (2)
  1. ZOLOFT [Suspect]
     Indication: DEPRESSION
     Dosage: 150 MG, 1X/DAY
  2. ZOLOFT [Suspect]
     Indication: ANXIETY

REACTIONS (1)
  - MUSCLE TIGHTNESS [None]
